FAERS Safety Report 9238356 (Version 1)
Quarter: 2013Q2

REPORT INFORMATION
  Report Type: Spontaneous
  Country: BR (occurrence: None)
  Receive Date: 20130416
  Receipt Date: 20130416
  Transmission Date: 20140414
  Serious: Yes (Other)
  Sender: FDA-Public Use
  Company Number: 2013-001088

PATIENT
  Age: 55 Year
  Sex: Female
  Weight: 92.5 kg

DRUGS (4)
  1. ACTONEL [Suspect]
     Indication: BONE DISORDER
     Route: 048
     Dates: start: 2011, end: 2012
  2. PURAN T4 (LEVOTHYROXINE SODIUM) [Concomitant]
  3. CORTISONE (CORTISONE) [Concomitant]
  4. OMEPRAZOLE (OMEPRAZOLE) [Concomitant]

REACTIONS (4)
  - Pituitary tumour [None]
  - Vision blurred [None]
  - Memory impairment [None]
  - Blood sodium abnormal [None]
